FAERS Safety Report 4950505-X (Version None)
Quarter: 2006Q1

REPORT INFORMATION
  Report Type: 
  Country: None (occurrence: None)
  Receive Date: 20060322
  Receipt Date: 20060314
  Transmission Date: 20060701
  Serious: Yes (Disabling)
  Sender: FDA-Public Use
  Company Number: GB-GLAXOSMITHKLINE-B0415864A

PATIENT
  Age: 63 Year
  Sex: Male
  Weight: 90.5 kg

DRUGS (2)
  1. AMOXICILLIN [Suspect]
     Indication: LOWER RESPIRATORY TRACT INFECTION
     Dosage: 500MG PER DAY
     Route: 048
     Dates: start: 20051205, end: 20051210
  2. NICOTINE [Concomitant]
     Indication: EX-SMOKER
     Dosage: 17.5MG PER DAY
     Route: 062
     Dates: start: 20051125, end: 20060105

REACTIONS (1)
  - UVEITIS [None]
